FAERS Safety Report 9460472 (Version 3)
Quarter: 2013Q4

REPORT INFORMATION
  Report Type: Spontaneous
  Country: US (occurrence: US)
  Receive Date: 20130815
  Receipt Date: 20131004
  Transmission Date: 20140711
  Serious: No
  Sender: FDA-Public Use
  Company Number: US-009507513-1308USA006858

PATIENT
  Age: 62 Year
  Sex: Male

DRUGS (16)
  1. CLARITIN-D-24 [Suspect]
     Indication: SEASONAL ALLERGY
     Dosage: 10 MG, QD
     Route: 048
     Dates: start: 20130711, end: 20130713
  2. NOVOLIN [Concomitant]
     Indication: DIABETES MELLITUS
     Dosage: UNK, UNKNOWN
  3. HUMULIN R [Concomitant]
     Indication: DIABETES MELLITUS
     Dosage: UNK, UNKNOWN
  4. LORCET [Concomitant]
     Indication: ARTHRITIS
     Dosage: UNK, UNKNOWN
  5. ABILIFY [Concomitant]
     Indication: DEPRESSION
     Dosage: UNK, UNKNOWN
  6. BUPROPION HYDROCHLORIDE [Concomitant]
     Indication: DEPRESSION
     Dosage: UNK, UNKNOWN
  7. NEXIUM [Concomitant]
     Indication: ABDOMINAL DISCOMFORT
     Dosage: UNK, UNKNOWN
  8. TOPIRAMATE [Concomitant]
     Indication: DEPRESSION
     Dosage: UNK, UNKNOWN
  9. SERTRALINE HYDROCHLORIDE [Concomitant]
     Indication: DEPRESSION
     Dosage: UNK, UNKNOWN
  10. METOPROLOL [Concomitant]
     Indication: BLOOD PRESSURE
     Dosage: UNK, UNKNOWN
  11. CLOPIDOGREL [Concomitant]
     Indication: ANTICOAGULANT THERAPY
     Dosage: UNK, UNKNOWN
  12. PRAVASTATIN SODIUM [Concomitant]
     Indication: ARTERIAL DISORDER
     Dosage: UNK, UNKNOWN
  13. RANEXA [Concomitant]
     Indication: ARTERIAL DISORDER
     Dosage: UNK, UNKNOWN
  14. CHOLECALCIFEROL [Concomitant]
     Indication: PRODUCT USED FOR UNKNOWN INDICATION
     Dosage: UNK, UNKNOWN
  15. ECOTRIN [Concomitant]
     Indication: ARTERIAL DISORDER
     Dosage: UNK, UNKNOWN
  16. IBUPROFEN [Concomitant]
     Indication: PRODUCT USED FOR UNKNOWN INDICATION
     Dosage: UNK, UNKNOWN

REACTIONS (2)
  - Dysuria [Recovered/Resolved]
  - Product lot number issue [Unknown]
